FAERS Safety Report 19949803 (Version 1)
Quarter: 2021Q4

REPORT INFORMATION
  Report Type: Spontaneous
  Country: GR (occurrence: GR)
  Receive Date: 20211013
  Receipt Date: 20211013
  Transmission Date: 20220303
  Serious: Yes (Other)
  Sender: FDA-Public Use
  Company Number: GR-USP-000002

PATIENT
  Age: 50 Year

DRUGS (2)
  1. NITROGLYCERIN [Suspect]
     Active Substance: NITROGLYCERIN
     Indication: Anal fissure
     Route: 065
  2. NITROGLYCERIN [Suspect]
     Active Substance: NITROGLYCERIN
     Indication: Anal fissure
     Route: 065

REACTIONS (6)
  - Maculopathy [Recovered/Resolved]
  - Product use in unapproved indication [Unknown]
  - Headache [Unknown]
  - Dizziness [Unknown]
  - Orthostatic hypotension [Unknown]
  - Pain [Unknown]
